FAERS Safety Report 7691721-6 (Version None)
Quarter: 2011Q3

REPORT INFORMATION
  Report Type: 
  Country: None (occurrence: None)
  Receive Date: 20110818
  Receipt Date: 20110811
  Transmission Date: 20111222
  Serious: Yes (Death)
  Sender: FDA-Public Use
  Company Number: US-GLAXOSMITHKLINE-A0940509A

PATIENT
  Age: 27 Year
  Sex: Male

DRUGS (2)
  1. TREPROSTINIL [Suspect]
     Indication: PULMONARY HYPERTENSION
     Route: 055
     Dates: start: 20110614
  2. FLOLAN [Suspect]
     Indication: PULMONARY HYPERTENSION
     Route: 065
     Dates: start: 20110601

REACTIONS (2)
  - BLOOD PRESSURE DECREASED [None]
  - DEATH [None]
